FAERS Safety Report 16889289 (Version 1)
Quarter: 2019Q4

REPORT INFORMATION
  Report Type: Spontaneous
  Country: US (occurrence: US)
  Receive Date: 20191007
  Receipt Date: 20191007
  Transmission Date: 20200122
  Serious: No
  Sender: FDA-Public Use
  Company Number: US-JNJFOC-20191005562

PATIENT
  Sex: Male
  Weight: 131.66 kg

DRUGS (1)
  1. MENS ROGAINE EXTRA STRENGTH [Suspect]
     Active Substance: MINOXIDIL
     Indication: ALOPECIA
     Dosage: AS DIRECTIONS SAYS
     Route: 061

REACTIONS (2)
  - Inappropriate schedule of product administration [Unknown]
  - Application site pain [Recovered/Resolved]
